FAERS Safety Report 12989233 (Version 1)
Quarter: 2016Q4

REPORT INFORMATION
  Report Type: Report from Study
  Country: TR (occurrence: TR)
  Receive Date: 20161201
  Receipt Date: 20161201
  Transmission Date: 20170207
  Serious: Yes (Other)
  Sender: FDA-Public Use
  Company Number: TR-ACCORD-045926

PATIENT
  Age: 21 Year
  Sex: Female

DRUGS (4)
  1. ETODOLAC. [Concomitant]
     Active Substance: ETODOLAC
  2. CEFPROZIL. [Concomitant]
     Active Substance: CEFPROZIL
  3. ESCITALOPRAM [Suspect]
     Active Substance: ESCITALOPRAM OXALATE
     Indication: PRODUCT USED FOR UNKNOWN INDICATION
  4. LEVOFLOXACIN/LEVOFLOXACIN MESYLATE [Concomitant]

REACTIONS (2)
  - Premature delivery [Unknown]
  - Maternal exposure during pregnancy [Unknown]
